FAERS Safety Report 6979334-2 (Version None)
Quarter: 2010Q3

REPORT INFORMATION
  Report Type: 
  Country: None (occurrence: None)
  Receive Date: 20100913
  Receipt Date: 20100716
  Transmission Date: 20110219
  Serious: Yes (Hospitalization)
  Sender: FDA-Public Use
  Company Number: US-BAYER-200829831NA

PATIENT
  Age: 37 Year
  Sex: Female
  Weight: 75 kg

DRUGS (11)
  1. YASMIN [Suspect]
     Indication: UTERINE LEIOMYOMA
     Route: 048
     Dates: start: 20051023, end: 20060216
  2. SYNTHROID [Concomitant]
     Indication: PRODUCT USED FOR UNKNOWN INDICATION
  3. LEVOTHYROXINE [Concomitant]
     Indication: PRODUCT USED FOR UNKNOWN INDICATION
     Dosage: FOR MORE THAN 10 YEARS
     Route: 065
  4. ADVIL LIQUI-GELS [Concomitant]
     Route: 065
  5. MULTI-VITAMIN [Concomitant]
     Indication: VITAMIN SUPPLEMENTATION
     Route: 048
  6. PROTONIX [Concomitant]
     Route: 065
  7. ADVAIR DISKUS 100/50 [Concomitant]
     Route: 065
  8. PROCRIT [Concomitant]
  9. ASCORBIC ACID [Concomitant]
     Indication: VITAMIN SUPPLEMENTATION
  10. LUPRON [Concomitant]
     Indication: UTERINE LEIOMYOMA
     Dosage: FIRST DOSE
  11. LUPRON [Concomitant]
     Dosage: SECOND DOSE

REACTIONS (6)
  - DYSPNOEA [None]
  - NON-CARDIAC CHEST PAIN [None]
  - PAIN IN EXTREMITY [None]
  - PLEURITIC PAIN [None]
  - PULMONARY EMBOLISM [None]
  - VENA CAVA THROMBOSIS [None]
